FAERS Safety Report 16531820 (Version 1)
Quarter: 2019Q3

REPORT INFORMATION
  Report Type: Spontaneous
  Country: US (occurrence: US)
  Receive Date: 20190703
  Receipt Date: 20190703
  Transmission Date: 20191004
  Serious: Yes (Hospitalization)
  Sender: FDA-Public Use
  Company Number: None

PATIENT
  Sex: Female

DRUGS (5)
  1. ABILIFY, TYLENOL, NICOTINE POL, MILK OF MAGN, IPRATROPIUM, [Concomitant]
  2. GAVISCON, ENEMIA, DULCOLAX, COMBIVENT, NORCO [Concomitant]
  3. LAMICTAL, VIT D3, ATIVAN, THERAGRAN-M, TRAZODONE [Concomitant]
  4. ABILIFY MAINTENA [Suspect]
     Active Substance: ARIPIPRAZOLE
     Indication: SCHIZOPHRENIA
     Dosage: ?          OTHER FREQUENCY:EVERY 28 DAYS;?
     Route: 030
     Dates: start: 20170330
  5. LEVOTHYROXIN, NORVASC, ZOLOFT, ZOCOR, VISTARIL [Concomitant]

REACTIONS (1)
  - Hospitalisation [None]
